FAERS Safety Report 5010225-2 (Version None)
Quarter: 2006Q2

REPORT INFORMATION
  Report Type: 
  Country: None (occurrence: None)
  Receive Date: 20060404
  Receipt Date: 20051214
  Transmission Date: 20061013
  Serious: No
  Sender: FDA-Public Use
  Company Number: US200512002501

PATIENT
  Age: 18 Year
  Sex: Female

DRUGS (4)
  1. CYMBALTA [Suspect]
     Indication: DEPRESSION
     Dosage: 60 MG, DAILY (1/D);  30 MG, DAILY (1/D),
     Dates: start: 20051101
  2. CYMBALTA [Suspect]
     Indication: DEPRESSION
     Dosage: 60 MG, DAILY (1/D);  30 MG, DAILY (1/D),
     Dates: start: 20051101
  3. ORTHO TRI-CYCLEN [Concomitant]
  4. RITALIN [Concomitant]

REACTIONS (3)
  - ACNE [None]
  - MENSTRUAL DISORDER [None]
  - METRORRHAGIA [None]
